FAERS Safety Report 16845215 (Version 1)
Quarter: 2019Q3

REPORT INFORMATION
  Report Type: Spontaneous
  Country: US (occurrence: US)
  Receive Date: 20190924
  Receipt Date: 20190924
  Transmission Date: 20191005
  Serious: Yes (Life-Threatening)
  Sender: FDA-Public Use
  Company Number: US-FRESENIUS KABI-FK201910406

PATIENT
  Age: 78 Year
  Sex: Female

DRUGS (1)
  1. TRANEXAMIC ACID (MANUFACTURER UNKNOWN) [Suspect]
     Active Substance: TRANEXAMIC ACID
     Indication: PRODUCT USED FOR UNKNOWN INDICATION
     Route: 037

REACTIONS (2)
  - Incorrect route of product administration [Recovered/Resolved]
  - Status epilepticus [Recovered/Resolved]
